FAERS Safety Report 16496069 (Version 1)
Quarter: 2019Q2

REPORT INFORMATION
  Report Type: Spontaneous
  Country: US (occurrence: US)
  Receive Date: 20190628
  Receipt Date: 20190628
  Transmission Date: 20190711
  Serious: No
  Sender: FDA-Public Use
  Company Number: US-GALDERMA-US19013550

PATIENT
  Age: 31 Year
  Sex: Female

DRUGS (3)
  1. PROACTIV MD ADAPALENE ACNE TREATMENT [Suspect]
     Active Substance: ADAPALENE
     Indication: ACNE
     Dosage: 0.1%
     Route: 061
     Dates: start: 20180824, end: 20190223
  2. GREEN TEA MOISTURIZER [Concomitant]
     Indication: ACNE
  3. FACE WASH [Concomitant]
     Indication: ACNE

REACTIONS (2)
  - Dry skin [Recovered/Resolved]
  - Drug ineffective [Recovered/Resolved]

NARRATIVE: CASE EVENT DATE: 20180826
